FAERS Safety Report 19168572 (Version 1)
Quarter: 2021Q2

REPORT INFORMATION
  Report Type: Spontaneous
  Country: GB (occurrence: GB)
  Receive Date: 20210422
  Receipt Date: 20210422
  Transmission Date: 20210717
  Serious: Yes (Hospitalization)
  Sender: FDA-Public Use
  Company Number: GB-MYLANLABS-2021M1023330

PATIENT
  Sex: Female

DRUGS (15)
  1. BENDROFLUMETHIAZIDE [Concomitant]
     Active Substance: BENDROFLUMETHIAZIDE
     Indication: ILL-DEFINED DISORDER
     Dosage: UNK
  2. COCODAMOL [Concomitant]
     Active Substance: ACETAMINOPHEN\CODEINE PHOSPHATE
     Indication: ILL-DEFINED DISORDER
     Dosage: UNK
  3. NOVOMIX [Concomitant]
     Active Substance: INSULIN ASPART
     Indication: ILL-DEFINED DISORDER
     Dosage: UNK
  4. SPIRONOLACTONE. [Concomitant]
     Active Substance: SPIRONOLACTONE
     Indication: ILL-DEFINED DISORDER
     Dosage: UNK
  5. LANSOPRAZOLE. [Suspect]
     Active Substance: LANSOPRAZOLE
     Indication: ILL-DEFINED DISORDER
     Dosage: UNK
  6. COLECALCIFEROL [Concomitant]
     Active Substance: CHOLECALCIFEROL
     Indication: ILL-DEFINED DISORDER
     Dosage: UNK
  7. BUMETANIDE. [Concomitant]
     Active Substance: BUMETANIDE
     Indication: ILL-DEFINED DISORDER
     Dosage: UNK
  8. DUOTRAV [Concomitant]
     Active Substance: TIMOLOL MALEATE\TRAVOPROST
     Indication: ILL-DEFINED DISORDER
     Dosage: UNK
  9. NEBIVOLOL. [Concomitant]
     Active Substance: NEBIVOLOL
     Indication: ILL-DEFINED DISORDER
     Dosage: UNK
  10. FOSTAIR [Concomitant]
     Active Substance: BECLOMETHASONE\FORMOTEROL
     Indication: ILL-DEFINED DISORDER
     Dosage: UNK
  11. LERCANIDIPINE HYDROCHLORIDE [Concomitant]
     Active Substance: LERCANIDIPINE HYDROCHLORIDE
     Indication: ILL-DEFINED DISORDER
     Dosage: UNK
  12. SALBUTAMOL [Concomitant]
     Active Substance: ALBUTEROL
     Indication: ILL-DEFINED DISORDER
     Dosage: UNK
  13. APIXABAN [Concomitant]
     Active Substance: APIXABAN
     Indication: ILL-DEFINED DISORDER
     Dosage: UNK
  14. CETIRIZINE HYDROCHLORIDE. [Concomitant]
     Active Substance: CETIRIZINE HYDROCHLORIDE
     Indication: ILL-DEFINED DISORDER
     Dosage: UNK
  15. SOLIFENACIN [Concomitant]
     Active Substance: SOLIFENACIN
     Indication: ILL-DEFINED DISORDER
     Dosage: UNK

REACTIONS (1)
  - Hyponatraemia [Recovered/Resolved]
